FAERS Safety Report 11632978 (Version 1)
Quarter: 2015Q4

REPORT INFORMATION
  Report Type: Spontaneous
  Country: JP (occurrence: JP)
  Receive Date: 20151015
  Receipt Date: 20151015
  Transmission Date: 20160304
  Serious: Yes (Other)
  Sender: FDA-Public Use
  Company Number: JP-PFIZER INC-2015339982

PATIENT
  Age: 63 Year
  Sex: Male

DRUGS (2)
  1. MIGLITOL. [Suspect]
     Active Substance: MIGLITOL
     Dosage: UNK
     Route: 065
     Dates: end: 20141220
  2. MIGLITOL. [Suspect]
     Active Substance: MIGLITOL
     Dosage: 150 MG, UNK
     Route: 048
     Dates: start: 20150424

REACTIONS (2)
  - Abdominal symptom [Unknown]
  - Vision blurred [Unknown]
